FAERS Safety Report 5941470-7 (Version None)
Quarter: 2008Q4

REPORT INFORMATION
  Report Type: 
  Country: None (occurrence: None)
  Receive Date: 20081103
  Receipt Date: 20081103
  Transmission Date: 20090506
  Serious: Yes (Hospitalization, Disabling)
  Sender: FDA-Public Use
  Company Number: None

PATIENT
  Age: 25 Year
  Sex: Female
  Weight: 56.6996 kg

DRUGS (1)
  1. MIRENA [Suspect]
     Indication: CONTRACEPTION
     Dosage: 1 EVERY 5 YEARS INTRA-UTERINE
     Route: 015
     Dates: start: 20080808, end: 20081009

REACTIONS (4)
  - ALOPECIA [None]
  - IUD MIGRATION [None]
  - MUSCLE SPASMS [None]
  - SCAR [None]
